FAERS Safety Report 26188607 (Version 2)
Quarter: 2025Q4

REPORT INFORMATION
  Report Type: Spontaneous
  Country: CN (occurrence: CN)
  Receive Date: 20251222
  Receipt Date: 20251229
  Transmission Date: 20260117
  Serious: Yes (Life-Threatening, Hospitalization)
  Sender: BEIGENE
  Company Number: CN-BEONEMEDICINES-BGN-2025-023301

PATIENT
  Age: 69 Year
  Sex: Female

DRUGS (1)
  1. TISLELIZUMAB [Suspect]
     Active Substance: TISLELIZUMAB
     Indication: Bladder cancer
     Dosage: 200 MILLIGRAM

REACTIONS (4)
  - Myasthenia gravis crisis [Recovering/Resolving]
  - Immune-mediated myocarditis [Recovering/Resolving]
  - Liver injury [Recovering/Resolving]
  - Myositis [Recovering/Resolving]
